FAERS Safety Report 18147337 (Version 2)
Quarter: 2020Q4

REPORT INFORMATION
  Report Type: Report from Study
  Country: GB (occurrence: GB)
  Receive Date: 20200813
  Receipt Date: 20201206
  Transmission Date: 20210113
  Serious: Yes (Hospitalization, Other)
  Sender: FDA-Public Use
  Company Number: GB-JNJFOC-20200807587

PATIENT
  Age: 4 Decade
  Sex: Female

DRUGS (2)
  1. STELARA [Suspect]
     Active Substance: USTEKINUMAB
     Indication: CROHN^S DISEASE
     Route: 058
     Dates: start: 201901
  2. STELARA [Suspect]
     Active Substance: USTEKINUMAB

REACTIONS (8)
  - Dehydration [Unknown]
  - Spinal disorder [Unknown]
  - Transient ischaemic attack [Unknown]
  - Sepsis [Unknown]
  - Crohn^s disease [Unknown]
  - Lower respiratory tract infection [Not Recovered/Not Resolved]
  - Bladder disorder [Unknown]
  - Back disorder [Unknown]
